FAERS Safety Report 8495299-9 (Version None)
Quarter: 2012Q3

REPORT INFORMATION
  Report Type: 
  Country: None (occurrence: None)
  Receive Date: 20120709
  Receipt Date: 20120703
  Transmission Date: 20120928
  Serious: Yes (Other)
  Sender: FDA-Public Use
  Company Number: BR-PFIZER INC-2012149848

PATIENT
  Sex: Female

DRUGS (2)
  1. PRISTIQ [Suspect]
     Dosage: 50 MG, UNK
  2. CLONAZEPAM [Concomitant]
     Dosage: 20 GTT, DAILY

REACTIONS (6)
  - HYPERHIDROSIS [None]
  - EMOTIONAL DISORDER [None]
  - OBESITY [None]
  - WEIGHT INCREASED [None]
  - SELF ESTEEM DECREASED [None]
  - FEELING ABNORMAL [None]
